FAERS Safety Report 6193211-9 (Version None)
Quarter: 2009Q2

REPORT INFORMATION
  Report Type: 
  Country: None (occurrence: None)
  Receive Date: 20090518
  Receipt Date: 20090511
  Transmission Date: 20091009
  Serious: Yes (Other)
  Sender: FDA-Public Use
  Company Number: A0778113A

PATIENT
  Age: 55 Year
  Sex: Female
  Weight: 59.1 kg

DRUGS (6)
  1. PROMACTA [Suspect]
     Indication: IDIOPATHIC THROMBOCYTOPENIC PURPURA
     Dosage: 50MG PER DAY
     Route: 048
     Dates: start: 20090311, end: 20090401
  2. PRILOSEC [Concomitant]
     Dosage: 20MG PER DAY
     Route: 048
  3. HYDROXYCHLOROQUINE SULFATE [Concomitant]
     Dosage: 200MG TWICE PER DAY
     Route: 048
  4. SIMVASTATIN [Concomitant]
     Dosage: 20MG PER DAY
     Route: 048
  5. PLAVIX [Concomitant]
     Dosage: 75MG PER DAY
     Route: 048
  6. CELEXA [Concomitant]
     Dosage: 20MG PER DAY
     Route: 048

REACTIONS (2)
  - DRUG INEFFECTIVE [None]
  - NEUTROPENIA [None]
